FAERS Safety Report 15817094 (Version 2)
Quarter: 2019Q3

REPORT INFORMATION
  Report Type: Spontaneous
  Country: US (occurrence: US)
  Receive Date: 20190113
  Receipt Date: 20190710
  Transmission Date: 20191004
  Serious: Yes (Other)
  Sender: FDA-Public Use
  Company Number: US-COOPERSURGICAL, INC.-US-2018CPS033373

PATIENT

DRUGS (1)
  1. PARAGARD T 380A [Suspect]
     Active Substance: COPPER
     Indication: CONTRACEPTION
     Dosage: UNK
     Route: 015
     Dates: start: 2013, end: 20181010

REACTIONS (5)
  - Menorrhagia [Unknown]
  - Fungal infection [Unknown]
  - Complication of device removal [Recovered/Resolved]
  - Foreign body in reproductive tract [Recovered/Resolved]
  - Device breakage [Recovered/Resolved]

NARRATIVE: CASE EVENT DATE: 2013
